FAERS Safety Report 6072610-X (Version None)
Quarter: 2009Q1

REPORT INFORMATION
  Report Type: 
  Country: None (occurrence: None)
  Receive Date: 20090210
  Receipt Date: 20090203
  Transmission Date: 20090719
  Serious: Yes (Hospitalization, Other)
  Sender: FDA-Public Use
  Company Number: US-ELI_LILLY_AND_COMPANY-US200902000524

PATIENT
  Age: 67 Year
  Sex: Male

DRUGS (1)
  1. BYETTA [Suspect]
     Dosage: UNK, UNK
     Dates: start: 20080805, end: 20080801

REACTIONS (2)
  - ADENOCARCINOMA PANCREAS [None]
  - PANCREATITIS [None]
